FAERS Safety Report 17631199 (Version 1)
Quarter: 2020Q2

REPORT INFORMATION
  Report Type: Spontaneous
  Country: CN (occurrence: CN)
  Receive Date: 20200406
  Receipt Date: 20200406
  Transmission Date: 20200713
  Serious: Yes (Other)
  Sender: FDA-Public Use
  Company Number: CN-BAYER-2020-055428

PATIENT
  Age: 62 Year
  Sex: Female
  Weight: 64 kg

DRUGS (1)
  1. NEXAVAR [Suspect]
     Active Substance: SORAFENIB
     Indication: HEPATIC CANCER
     Dosage: 0.4 G, BID
     Route: 048
     Dates: start: 20200206

REACTIONS (7)
  - Hepatic cirrhosis [None]
  - Abdominal distension [None]
  - Skin ulcer [None]
  - Skin exfoliation [None]
  - Ascites [None]
  - Palmar-plantar erythrodysaesthesia syndrome [None]
  - Decreased appetite [None]

NARRATIVE: CASE EVENT DATE: 202002
